FAERS Safety Report 9845038 (Version 1)
Quarter: 2014Q1

REPORT INFORMATION
  Report Type: Spontaneous
  Country: US (occurrence: None)
  Receive Date: 20140122
  Receipt Date: 20140122
  Transmission Date: 20141002
  Serious: Yes (Hospitalization, Other)
  Sender: FDA-Public Use
  Company Number: ADR-2014-00078

PATIENT
  Age: 28 Year
  Sex: Male

DRUGS (2)
  1. BACLOFEN [Suspect]
     Indication: NEURODEGENERATIVE DISORDER
     Dosage: SEE B5
  2. MAGNESIUM SULFATE [Suspect]
     Indication: NEURODEGENERATIVE DISORDER
     Dosage: 4G/DAY X 3 DAYS

REACTIONS (3)
  - Psychotic disorder [None]
  - Muscle rigidity [None]
  - Blood creatine phosphokinase increased [None]
